FAERS Safety Report 6999832-5 (Version None)
Quarter: 2010Q3

REPORT INFORMATION
  Report Type: 
  Country: None (occurrence: None)
  Receive Date: 20100920
  Receipt Date: 20070501
  Transmission Date: 20110219
  Serious: Yes (Other)
  Sender: FDA-Public Use
  Company Number: US-ASTRAZENECA-2006UW23952

PATIENT
  Sex: Female
  Weight: 60.8 kg

DRUGS (20)
  1. SEROQUEL [Suspect]
     Indication: SCHIZOPHRENIA
     Route: 048
     Dates: start: 20030301
  2. SEROQUEL [Suspect]
     Indication: BIPOLAR DISORDER
     Route: 048
     Dates: start: 20030301
  3. SEROQUEL [Suspect]
     Indication: DEPRESSION
     Route: 048
     Dates: start: 20030301
  4. SEROQUEL [Suspect]
     Dosage: 300 MG TO 600 MG
     Route: 048
     Dates: start: 20030319
  5. SEROQUEL [Suspect]
     Dosage: 300 MG TO 600 MG
     Route: 048
     Dates: start: 20030319
  6. SEROQUEL [Suspect]
     Dosage: 300 MG TO 600 MG
     Route: 048
     Dates: start: 20030319
  7. ABILIFY [Suspect]
     Route: 048
     Dates: start: 20050405
  8. RISPERDAL [Suspect]
  9. ZYPREXA [Suspect]
     Dates: start: 20030319
  10. HALDOL [Concomitant]
  11. NAVANE [Concomitant]
  12. TRILAFON [Concomitant]
  13. TRAZODONE HCL [Concomitant]
     Route: 048
     Dates: start: 20050503
  14. DEPAKOTE [Concomitant]
     Dosage: IT PO QAM AND 3T PO QHS
     Dates: start: 20050503
  15. ZOLOFT [Concomitant]
     Route: 048
     Dates: start: 20050503
  16. VICODIN [Concomitant]
     Dosage: 5/500 1-2T PO Q6H PP
     Dates: start: 20050407
  17. THORAZINE [Concomitant]
     Dosage: 50 - 100 MG PRN
     Dates: start: 19840808
  18. STELAZINE [Concomitant]
     Dates: start: 19840808
  19. LITHIUM [Concomitant]
     Dosage: 900 MG TO 1200 MG
     Dates: start: 19840808
  20. GLUCOPHAGE [Concomitant]
     Route: 048
     Dates: start: 20021220

REACTIONS (2)
  - DIABETES MELLITUS [None]
  - DIABETIC KETOACIDOSIS [None]
